FAERS Safety Report 9803404 (Version 1)
Quarter: 2014Q1

REPORT INFORMATION
  Report Type: Spontaneous
  Country: AU (occurrence: None)
  Receive Date: 20140103
  Receipt Date: 20140103
  Transmission Date: 20141002
  Serious: Yes (Hospitalization, Other)
  Sender: FDA-Public Use
  Company Number: FK201305566

PATIENT
  Age: 69 Year
  Sex: Female

DRUGS (4)
  1. CHLORAMPHENICOL [Suspect]
     Indication: PROPHYLAXIS
     Route: 061
  2. VANCOMYCIN [Suspect]
     Indication: INFECTION
  3. PENICILLIN (BENZYL-PENICILLIN) [Concomitant]
  4. FLUCLOXACILLIN (FLUCLOXACILLIN) [Concomitant]

REACTIONS (2)
  - Dermatitis contact [None]
  - Red man syndrome [None]
